FAERS Safety Report 16774689 (Version 2)
Quarter: 2019Q4

REPORT INFORMATION
  Report Type: Spontaneous
  Country: US (occurrence: US)
  Receive Date: 20190905
  Receipt Date: 20191011
  Transmission Date: 20200122
  Serious: No
  Sender: FDA-Public Use
  Company Number: US-ASTRAZENECA-2019SF14673

PATIENT
  Age: 807 Month
  Weight: 95.7 kg

DRUGS (1)
  1. BYDUREON BCISE [Suspect]
     Active Substance: EXENATIDE
     Indication: TYPE 2 DIABETES MELLITUS
     Route: 058
     Dates: start: 201907

REACTIONS (6)
  - Wrong technique in device usage process [Recovered/Resolved]
  - Drug delivery system malfunction [Unknown]
  - Injection site induration [Not Recovered/Not Resolved]
  - Incorrect dose administered [Recovered/Resolved]
  - Device dislocation [Unknown]
  - Device leakage [Unknown]

NARRATIVE: CASE EVENT DATE: 201907
